FAERS Safety Report 8588870-7 (Version None)
Quarter: 2012Q3

REPORT INFORMATION
  Report Type: 
  Country: None (occurrence: None)
  Receive Date: 20120803
  Receipt Date: 20120803
  Transmission Date: 20120928
  Serious: No
  Sender: FDA-Public Use
  Company Number: None

PATIENT
  Age: 43 Year
  Sex: Female

DRUGS (10)
  1. REVATIO [Concomitant]
  2. LEVOTHYROXINE SODIUM [Concomitant]
  3. GABAPENTIN [Concomitant]
  4. WARFARIN SODIUM [Concomitant]
  5. PANTOPRAZOLE [Concomitant]
  6. FUROSEMIDE [Concomitant]
  7. HYDROCODONE BITARTRATE AND ACETAMINOPHEN [Concomitant]
  8. ONDANSETRON [Concomitant]
  9. TREPROSTONIL [Concomitant]
  10. LETAIRIS [Suspect]
     Indication: PULMONARY HYPERTENSION
     Dosage: 10 MG DAILY ORALLY
     Route: 048
     Dates: start: 20120401, end: 20120601

REACTIONS (6)
  - OEDEMA PERIPHERAL [None]
  - FLUID OVERLOAD [None]
  - ANAEMIA [None]
  - NAUSEA [None]
  - PALPITATIONS [None]
  - FATIGUE [None]
